FAERS Safety Report 9987612 (Version 1)
Quarter: 2014Q1

REPORT INFORMATION
  Report Type: Spontaneous
  Country: US (occurrence: US)
  Receive Date: 20140307
  Receipt Date: 20140307
  Transmission Date: 20141002
  Serious: No
  Sender: FDA-Public Use
  Company Number: US-AMGEN-USASP2014013421

PATIENT
  Age: 15 Year
  Sex: Male

DRUGS (3)
  1. ENBREL [Suspect]
     Indication: PSORIASIS
     Dosage: 50 MG, QWK
     Route: 065
     Dates: start: 20120924
  2. ULTRAVATE                          /00008504/ [Concomitant]
     Dosage: UNK
     Route: 061
  3. OFLOX [Concomitant]
     Dosage: UNK
     Route: 061

REACTIONS (1)
  - Blood urea increased [Unknown]
